FAERS Safety Report 11152957 (Version 3)
Quarter: 2015Q2

REPORT INFORMATION
  Report Type: Spontaneous
  Country: US (occurrence: None)
  Receive Date: 20150522
  Receipt Date: 20150612
  Transmission Date: 20150821
  Serious: Yes (Other)
  Sender: FDA-Public Use
  Company Number: ADR-2015-00942

PATIENT
  Sex: Male

DRUGS (9)
  1. RITALIN [Suspect]
     Active Substance: METHYLPHENIDATE HYDROCHLORIDE
  2. BACLOFEN INTRATHECAL [Suspect]
     Active Substance: BACLOFEN
     Indication: PAIN
  3. PROZAC [Suspect]
     Active Substance: FLUOXETINE HYDROCHLORIDE
  4. OXYCODONE [Suspect]
     Active Substance: OXYCODONE
  5. ADVAIR HFA [Suspect]
     Active Substance: FLUTICASONE PROPIONATE\SALMETEROL XINAFOATE
  6. SYNTHROID [Suspect]
     Active Substance: LEVOTHYROXINE SODIUM
  7. MORPHINE (10 MG/ML), INTRATHECAL [Suspect]
     Active Substance: MORPHINE
     Indication: MUSCLE RELAXANT THERAPY
     Route: 037
  8. PRIALT [Suspect]
     Active Substance: ZICONOTIDE ACETATE
     Indication: PAIN
  9. HYDROMORPHONE [Suspect]
     Active Substance: HYDROMORPHONE

REACTIONS (10)
  - Swelling [None]
  - Post procedural complication [None]
  - Fluid retention [None]
  - Hallucination [None]
  - Abnormal behaviour [None]
  - Pain [None]
  - Bipolar disorder [None]
  - Seroma [None]
  - Pain in extremity [None]
  - Joint swelling [None]
